FAERS Safety Report 12890785 (Version 1)
Quarter: 2016Q4

REPORT INFORMATION
  Report Type: Spontaneous
  Country: US (occurrence: US)
  Receive Date: 20161025
  Receipt Date: 20161025
  Transmission Date: 20170207
  Serious: No
  Sender: FDA-Public Use
  Company Number: None

PATIENT
  Age: 74 Year
  Sex: Female

DRUGS (1)
  1. IBRANCE [Suspect]
     Active Substance: PALBOCICLIB
     Indication: MALIGNANT PLEURAL EFFUSION
     Route: 048
     Dates: start: 20150522

REACTIONS (2)
  - Pruritus generalised [None]
  - Rash generalised [None]

NARRATIVE: CASE EVENT DATE: 20160101
